FAERS Safety Report 17808220 (Version 5)
Quarter: 2021Q4

REPORT INFORMATION
  Report Type: Spontaneous
  Country: DE (occurrence: DE)
  Receive Date: 20200520
  Receipt Date: 20211129
  Transmission Date: 20220304
  Serious: Yes (Hospitalization, Other)
  Sender: FDA-Public Use
  Company Number: DE-NOVPHSZ-PHHY2019DE151778

PATIENT
  Sex: Male

DRUGS (18)
  1. CANDESARTAN [Suspect]
     Active Substance: CANDESARTAN
     Indication: Hypertension
     Dosage: 32 MILLIGRAM, 32 MG, UNK
     Route: 065
     Dates: start: 20180925
  2. VALSARTAN [Suspect]
     Active Substance: VALSARTAN
     Indication: Hypertension
     Dosage: 320 MILLIGRAM, (320 MG)
     Route: 065
     Dates: start: 20180622
  3. VALSARTAN [Suspect]
     Active Substance: VALSARTAN
     Indication: Hypertension
     Dosage: 160 MILLIGRAM, QD, (160 MG, QD, ONCE DAILY IN THE MORNING)
     Route: 065
     Dates: start: 20150910, end: 2016
  4. VALSARTAN [Suspect]
     Active Substance: VALSARTAN
     Dosage: 160 MILLIGRAM
     Route: 065
     Dates: start: 20160621, end: 2016
  5. VALSARTAN [Suspect]
     Active Substance: VALSARTAN
     Dosage: 320 MILLIGRAM
     Route: 065
     Dates: start: 20170817
  6. VALSARTAN [Suspect]
     Active Substance: VALSARTAN
     Dosage: 320 MILLIGRAM
     Route: 065
     Dates: start: 20170223
  7. VALSARTAN [Suspect]
     Active Substance: VALSARTAN
     Dosage: 320 MILLIGRAM
     Route: 065
     Dates: start: 20171211, end: 20180319
  8. VALSARTAN [Suspect]
     Active Substance: VALSARTAN
     Dosage: 320 MILLIGRAM, QD, (320 MG, QD, ONCE DAILY IN THE MORNING)
     Route: 065
     Dates: start: 20161114, end: 20180706
  9. VALSARTAN [Suspect]
     Active Substance: VALSARTAN
     Dosage: 160 MILLIGRAM
     Route: 065
     Dates: start: 20151204, end: 2016
  10. VALSARTAN [Suspect]
     Active Substance: VALSARTAN
     Dosage: 160 MILLIGRAM
     Route: 065
     Dates: start: 20160926, end: 2016
  11. VALSARTAN [Suspect]
     Active Substance: VALSARTAN
     Dosage: 160 MILLIGRAM
     Route: 065
     Dates: start: 20160302, end: 2016
  12. VALSARTAN [Suspect]
     Active Substance: VALSARTAN
     Dosage: 320 MILLIGRAM
     Route: 065
     Dates: start: 20170523
  13. METOSUCCINAT [Concomitant]
     Indication: Product used for unknown indication
     Dosage: 47.5 MILLIGRAM, 47.5 MG, UNK
     Route: 065
     Dates: end: 20170521
  14. METOSUCCINAT [Concomitant]
     Dosage: 95 MILLIGRAM, (95 MG, UNK)
     Route: 065
     Dates: start: 20170522
  15. AMLODIPINE [Concomitant]
     Active Substance: AMLODIPINE BESYLATE
     Indication: Product used for unknown indication
     Dosage: 10 MILLIGRAM, QD, (5 MG, BID (IN THE MORNINGS AND EVENINGS)
     Route: 065
     Dates: start: 201611
  16. SIMVASTATIN [Concomitant]
     Active Substance: SIMVASTATIN
     Indication: Product used for unknown indication
     Dosage: 20 MILLIGRAM, QD, (20 MG, QD (IN THE EVENINGS))
     Route: 065
     Dates: start: 201611
  17. TICAGRELOR [Concomitant]
     Active Substance: TICAGRELOR
     Indication: Product used for unknown indication
     Dosage: 90 MG, UNK
     Route: 065
     Dates: start: 20161114, end: 201711
  18. ASPIRIN [Concomitant]
     Active Substance: ASPIRIN
     Indication: Product used for unknown indication
     Dosage: 100 OT, UNK
     Route: 065
     Dates: start: 201611

REACTIONS (11)
  - Coronary artery stenosis [Unknown]
  - Anxiety [Unknown]
  - Emotional distress [Unknown]
  - Product contamination [Unknown]
  - General physical health deterioration [Unknown]
  - Quality of life decreased [Unknown]
  - Depressed mood [Unknown]
  - Myalgia [Recovered/Resolved]
  - Fear [Unknown]
  - Asthenia [Unknown]
  - Middle insomnia [Unknown]
